FAERS Safety Report 4837377-9 (Version None)
Quarter: 2005Q4

REPORT INFORMATION
  Report Type: 
  Country: None (occurrence: None)
  Receive Date: 20051128
  Receipt Date: 20051118
  Transmission Date: 20060501
  Serious: Yes (Other)
  Sender: FDA-Public Use
  Company Number: JP-BOEHRINGER INGELHEIM PHARMACEUTICALS, INC.-2005-BP-20521YA

PATIENT
  Age: 83 Year
  Sex: Male

DRUGS (3)
  1. HARNAL [Suspect]
     Indication: BENIGN PROSTATIC HYPERPLASIA
     Route: 048
     Dates: start: 20050101
  2. ACECOL [Suspect]
     Route: 048
     Dates: start: 20050101
  3. MEILAX [Suspect]
     Route: 048
     Dates: start: 20050101

REACTIONS (1)
  - DERMATITIS EXFOLIATIVE [None]
